FAERS Safety Report 4649605-3 (Version None)
Quarter: 2005Q2

REPORT INFORMATION
  Report Type: 
  Country: None (occurrence: None)
  Receive Date: 20050331
  Receipt Date: 20050113
  Transmission Date: 20051028
  Serious: No
  Sender: FDA-Public Use
  Company Number: 05P-163-0286490-00

PATIENT
  Age: 53 Year
  Sex: Female
  Weight: 63.5036 kg

DRUGS (10)
  1. HUMIRA [Suspect]
     Indication: RHEUMATOID ARTHRITIS
     Dosage: 40 MG, 1 IN 2 WK, SUBCUTANEOUS
     Route: 058
     Dates: start: 20041213, end: 20041213
  2. LEVOTHYROXINE SODIUM [Concomitant]
  3. CARBIDOPA ER [Concomitant]
  4. TRAMADOL HCL [Concomitant]
  5. FOLIC ACID [Concomitant]
  6. AMANTADINE HCL [Concomitant]
  7. METHOTREXATE [Concomitant]
  8. AVINZA [Concomitant]
  9. ESTROGENS CONJUGATED [Concomitant]
  10. DICLOFENAC SODIUM [Concomitant]

REACTIONS (2)
  - SINUSITIS [None]
  - UPPER RESPIRATORY TRACT INFECTION [None]
